FAERS Safety Report 7022291-3 (Version None)
Quarter: 2010Q3

REPORT INFORMATION
  Report Type: 
  Country: None (occurrence: None)
  Receive Date: 20100930
  Receipt Date: 20100928
  Transmission Date: 20110219
  Serious: Yes (Death)
  Sender: FDA-Public Use
  Company Number: US-JNJFOC-20100908683

PATIENT

DRUGS (3)
  1. DOXORUBICIN HYDROCHLORIDE [Suspect]
     Indication: OVARIAN CANCER
     Route: 042
  2. BEVACIZUMAB [Suspect]
     Indication: OVARIAN CANCER
     Route: 042
  3. TEMSIROLIMUS [Suspect]
     Indication: OVARIAN CANCER
     Route: 042

REACTIONS (1)
  - INTESTINAL PERFORATION [None]
